FAERS Safety Report 5734168-1 (Version None)
Quarter: 2008Q2

REPORT INFORMATION
  Report Type: 
  Country: None (occurrence: None)
  Receive Date: 20080509
  Receipt Date: 20080428
  Transmission Date: 20081010
  Serious: Yes (Other)
  Sender: FDA-Public Use
  Company Number: IT-GENENTECH-260631

PATIENT
  Age: 50 Year
  Sex: Male

DRUGS (6)
  1. MABTHERA [Suspect]
     Indication: B-CELL LYMPHOMA
     Dosage: 375 MG/M2, Q3W
     Route: 065
  2. WARFARIN SODIUM [Concomitant]
     Indication: ANTICOAGULANT THERAPY
  3. CYCLOPHOSPHAMIDE [Concomitant]
     Indication: B-CELL LYMPHOMA
  4. DOXORUBICIN HCL [Concomitant]
     Indication: B-CELL LYMPHOMA
  5. VINCRISTINE [Concomitant]
     Indication: B-CELL LYMPHOMA
  6. PREDNISONE TAB [Concomitant]
     Indication: B-CELL LYMPHOMA

REACTIONS (2)
  - PELVIC VENOUS THROMBOSIS [None]
  - VENOUS THROMBOSIS [None]
